FAERS Safety Report 6407264-3 (Version None)
Quarter: 2009Q4

REPORT INFORMATION
  Report Type: 
  Country: None (occurrence: None)
  Receive Date: 20091020
  Receipt Date: 20091013
  Transmission Date: 20100525
  Serious: Yes (Hospitalization)
  Sender: FDA-Public Use
  Company Number: A0785709A

PATIENT
  Age: 67 Year
  Sex: Male

DRUGS (10)
  1. AVANDIA [Suspect]
     Dosage: 8MG PER DAY
     Route: 048
     Dates: start: 20001101, end: 20060901
  2. LIPITOR [Concomitant]
  3. ACCUPRIL [Concomitant]
  4. ALEVE [Concomitant]
  5. AMARYL [Concomitant]
  6. NOVOLIN [Concomitant]
  7. ACCUPRIL [Concomitant]
  8. NEURONTIN [Concomitant]
  9. LYRICA [Concomitant]
  10. COMBIVENT [Concomitant]

REACTIONS (5)
  - CARDIAC FAILURE CONGESTIVE [None]
  - CORONARY ARTERY DISEASE [None]
  - ISCHAEMIC CARDIOMYOPATHY [None]
  - MYOCARDIAL INFARCTION [None]
  - PULMONARY HYPERTENSION [None]
